FAERS Safety Report 9806524 (Version 2)
Quarter: 2014Q1

REPORT INFORMATION
  Report Type: Spontaneous
  Country: US (occurrence: US)
  Receive Date: 20140109
  Receipt Date: 20140121
  Transmission Date: 20141002
  Serious: Yes (Other)
  Sender: FDA-Public Use
  Company Number: US-PFIZER INC-2014005474

PATIENT
  Age: 47 Year
  Sex: Female
  Weight: 109 kg

DRUGS (3)
  1. LYRICA [Suspect]
     Indication: DIABETIC NEUROPATHY
     Dosage: 300 MG, 2X/DAY
     Route: 048
  2. LYRICA [Suspect]
     Indication: COMPLEX REGIONAL PAIN SYNDROME
  3. LYRICA [Suspect]
     Indication: COMPLEX REGIONAL PAIN SYNDROME

REACTIONS (2)
  - Off label use [Unknown]
  - Leukaemia [Unknown]
